FAERS Safety Report 5339769-0 (Version None)
Quarter: 2007Q2

REPORT INFORMATION
  Report Type: 
  Country: None (occurrence: None)
  Receive Date: 20070531
  Receipt Date: 20070521
  Transmission Date: 20071010
  Serious: Yes (Other)
  Sender: FDA-Public Use
  Company Number: PHBS2007PL05443

PATIENT
  Age: 11 Year
  Sex: Female
  Weight: 40 kg

DRUGS (1)
  1. TORECAN [Suspect]
     Indication: MOTION SICKNESS
     Dosage: 19.5 MG/D
     Route: 048

REACTIONS (2)
  - DYSTONIA [None]
  - TORTICOLLIS [None]
